FAERS Safety Report 12717162 (Version 2)
Quarter: 2016Q4

REPORT INFORMATION
  Report Type: Report from Study
  Country: JP (occurrence: JP)
  Receive Date: 20160906
  Receipt Date: 20161223
  Transmission Date: 20170207
  Serious: Yes (Death, Life-Threatening)
  Sender: FDA-Public Use
  Company Number: JP-SA-THYM-1001862

PATIENT
  Age: 62 Year
  Sex: Male
  Weight: 61.4 kg

DRUGS (24)
  1. ALKERAN [Concomitant]
     Active Substance: MELPHALAN
     Dosage: UNK
     Dates: start: 20090703, end: 20090704
  2. PANIPENEM [Concomitant]
     Active Substance: PANIPENEM
     Dosage: UNK
     Dates: start: 20090704, end: 20090918
  3. SOSEGON [Concomitant]
     Active Substance: PENTAZOCINE
     Dosage: UNK
     Dates: start: 20090613, end: 20091025
  4. FLUDARA [Suspect]
     Active Substance: FLUDARABINE PHOSPHATE
     Indication: PRODUCT USED FOR UNKNOWN INDICATION
     Dosage: UNK
     Route: 042
     Dates: start: 20090629, end: 20090704
  5. SOL-MELCORT [Concomitant]
     Active Substance: METHYLPREDNISOLONE SODIUM SUCCINATE
     Dosage: UNK
     Dates: start: 20090701, end: 20091107
  6. VANCOMYCIN HYDROCHLORIDE. [Concomitant]
     Active Substance: VANCOMYCIN HYDROCHLORIDE
     Indication: INFECTION PROPHYLAXIS
     Dosage: UNK
     Dates: start: 20090710, end: 20090728
  7. GENTAMICIN SULFATE. [Concomitant]
     Active Substance: GENTAMICIN SULFATE
     Dosage: UNK
     Dates: start: 20090927, end: 20090930
  8. FLUCONAZOLE. [Concomitant]
     Active Substance: FLUCONAZOLE
     Indication: INFECTION PROPHYLAXIS
     Dosage: UNK
     Dates: start: 20090601, end: 20090702
  9. ITRIZOLE [Concomitant]
     Active Substance: ITRACONAZOLE
     Indication: INFECTION PROPHYLAXIS
     Dosage: UNK
     Dates: start: 20090629, end: 20090712
  10. ACICLOVIR SODIUM [Concomitant]
     Indication: INFECTION PROPHYLAXIS
     Dosage: UNK
     Dates: start: 20090708, end: 20090731
  11. ITRIZOLE [Concomitant]
     Active Substance: ITRACONAZOLE
     Indication: INFECTION PROPHYLAXIS
     Dosage: UNK
     Dates: start: 20090710, end: 20091107
  12. KYTRIL [Concomitant]
     Active Substance: GRANISETRON HYDROCHLORIDE
     Indication: ANTIEMETIC SUPPORTIVE CARE
     Dosage: UNK
     Dates: start: 20090601, end: 20090704
  13. PENTCILLIN [Concomitant]
     Active Substance: PIPERACILLIN SODIUM
     Indication: INFECTION PROPHYLAXIS
     Dosage: UNK
     Dates: start: 20090603, end: 20091106
  14. METHOTREXATE SODIUM. [Concomitant]
     Active Substance: METHOTREXATE SODIUM
     Dosage: UNK
     Dates: start: 20090622, end: 20090930
  15. PROGRAF [Concomitant]
     Active Substance: TACROLIMUS\TACROLIMUS ANHYDROUS
     Indication: PROPHYLAXIS AGAINST GRAFT VERSUS HOST DISEASE
     Dosage: UNK
     Dates: start: 20090705, end: 20091106
  16. GANCICLOVIR. [Concomitant]
     Active Substance: GANCICLOVIR
     Dosage: UNK
     Dates: start: 20090730, end: 20091107
  17. CARBENIN [Concomitant]
     Active Substance: BETAMIPRON\PANIPENEM
     Indication: INFECTION PROPHYLAXIS
  18. THYMOGLOBULINE [Suspect]
     Active Substance: LAPINE T-LYMPHOCYTE IMMUNE GLOBULIN
     Indication: BONE MARROW CONDITIONING REGIMEN
     Dosage: 150 MG, QD
     Route: 042
     Dates: start: 20090701, end: 20090702
  19. BFLUID [Concomitant]
     Active Substance: AMINO ACIDS\DEXTROSE\ELECTROLYTES NOS\VITAMINS
     Indication: PROPHYLAXIS AGAINST DEHYDRATION
     Dosage: UNK
     Dates: start: 20090601, end: 20090704
  20. SUNRABIN [Concomitant]
     Active Substance: ENOCITABINE
     Dosage: UNK
     Dates: start: 20090601, end: 20090602
  21. LASTET [Concomitant]
     Active Substance: ETOPOSIDE
     Indication: PROPHYLAXIS
     Dosage: UNK
     Dates: start: 20090629, end: 20090630
  22. BUSULFEX [Concomitant]
     Active Substance: BUSULFAN
     Dosage: UNK
     Dates: start: 20090701, end: 20090703
  23. GRAN [Concomitant]
     Active Substance: FILGRASTIM
     Indication: ANAEMIA PROPHYLAXIS
     Dosage: UNK
     Dates: start: 20090716, end: 20091023
  24. BAKTAR [Concomitant]
     Active Substance: SULFAMETHOXAZOLE\TRIMETHOPRIM
     Indication: INFECTION PROPHYLAXIS
     Dosage: UNK
     Dates: start: 20090629, end: 20091107

REACTIONS (3)
  - Pulmonary haemorrhage [Fatal]
  - Interstitial lung disease [Fatal]
  - Cytomegalovirus enterocolitis [Not Recovered/Not Resolved]

NARRATIVE: CASE EVENT DATE: 20090817
